FAERS Safety Report 25029020 (Version 1)
Quarter: 2025Q1

REPORT INFORMATION
  Report Type: Report from Study
  Country: ES (occurrence: ES)
  Receive Date: 20250303
  Receipt Date: 20250303
  Transmission Date: 20250408
  Serious: Yes (Other)
  Sender: ABBVIE
  Company Number: ES-ABBVIE-6158108

PATIENT
  Age: 68 Year
  Sex: Male

DRUGS (1)
  1. CARBIDOPA\LEVODOPA [Suspect]
     Active Substance: CARBIDOPA\LEVODOPA
     Indication: Parkinson^s disease
     Route: 058
     Dates: start: 20250123

REACTIONS (3)
  - Aggression [Not Recovered/Not Resolved]
  - Adverse drug reaction [Unknown]
  - Abnormal behaviour [Unknown]

NARRATIVE: CASE EVENT DATE: 20250101
